FAERS Safety Report 7987017-5 (Version None)
Quarter: 2011Q4

REPORT INFORMATION
  Report Type: 
  Country: None (occurrence: None)
  Receive Date: 20111216
  Receipt Date: 20110311
  Transmission Date: 20120403
  Serious: No
  Sender: FDA-Public Use
  Company Number: US-BRISTOL-MYERS SQUIBB COMPANY-15602121

PATIENT
  Age: 16 Year
  Sex: Female
  Weight: 57 kg

DRUGS (2)
  1. ABILIFY [Suspect]
     Dosage: 1 DF=1/2 PILL OF 5MG ABILIFY,ALSO TAKEN 2 MG,ALSO TAKEN HALF OF 1/2 PILL
     Dates: start: 20110101
  2. YAZ [Concomitant]

REACTIONS (5)
  - PAINFUL RESPIRATION [None]
  - WRONG TECHNIQUE IN DRUG USAGE PROCESS [None]
  - THROAT TIGHTNESS [None]
  - NERVOUSNESS [None]
  - ABDOMINAL DISCOMFORT [None]
